FAERS Safety Report 14165848 (Version 1)
Quarter: 2017Q4

REPORT INFORMATION
  Report Type: Spontaneous
  Country: NL (occurrence: NL)
  Receive Date: 20171107
  Receipt Date: 20171107
  Transmission Date: 20180321
  Serious: Yes (Hospitalization)
  Sender: FDA-Public Use
  Company Number: NL-TEVA-821409ROM

PATIENT
  Age: 70 Year
  Sex: Male
  Weight: 68.4 kg

DRUGS (12)
  1. SIMVASTATINE [Concomitant]
     Active Substance: SIMVASTATIN
     Route: 048
  2. PREGABALINE CAPSULE  25MG [Concomitant]
     Route: 048
  3. CARBOPLATINE INFOPL CONC 10MG/ML [Suspect]
     Active Substance: CARBOPLATIN
     Indication: NON-HODGKIN^S LYMPHOMA
     Dosage: 560MG; CONCENTRATE FOR SOLUTION FOR INFUSION
     Route: 042
     Dates: start: 20171004
  4. METFORMINE HYDROCHLORIDE [Concomitant]
     Active Substance: METFORMIN HYDROCHLORIDE
     Route: 048
  5. CYMBALTA CAPSULE MSR 30MG [Concomitant]
     Dosage: GASTRO-RESISTANT CAPSULE
     Route: 048
  6. PANTOPRAZOLE SODIUM. [Concomitant]
     Active Substance: PANTOPRAZOLE SODIUM
     Dosage: GASTRO-RESISTANT TABLET
     Route: 048
  7. FOLIUMZUUR [Concomitant]
     Active Substance: FOLIC ACID
     Route: 048
  8. ALIMTA [Suspect]
     Active Substance: PEMETREXED DISODIUM
     Indication: NON-HODGKIN^S LYMPHOMA
     Dosage: 960 MG; POWDER FOR SOLUTION FOR INFUSION
     Route: 042
     Dates: start: 20171004
  9. METOPROLOL TABLET   12,5MG [Concomitant]
     Active Substance: METOPROLOL
     Route: 048
  10. PRADAXA CAPSULE  75MG [Concomitant]
     Route: 048
  11. LANOXIN [Concomitant]
     Active Substance: DIGOXIN
     Route: 048
  12. DIAMICRON MR TABLET MGA 30MG [Concomitant]
     Route: 048

REACTIONS (2)
  - Urinary tract infection [Recovered/Resolved]
  - Urinary retention [Recovered/Resolved]

NARRATIVE: CASE EVENT DATE: 20171015
